FAERS Safety Report 4977121-8 (Version None)
Quarter: 2006Q2

REPORT INFORMATION
  Report Type: 
  Country: None (occurrence: None)
  Receive Date: 20060413
  Receipt Date: 20060328
  Transmission Date: 20061013
  Serious: Yes (Other)
  Sender: FDA-Public Use
  Company Number: DSA_27953_2006

PATIENT
  Age: 57 Year
  Sex: Female
  Weight: 84.369 kg

DRUGS (5)
  1. CARDIZEM LA [Suspect]
     Indication: HYPERTENSION
     Dosage: 360 MG Q DAY
     Dates: start: 20060227, end: 20060328
  2. CARDIZEM LA [Suspect]
     Indication: HYPERTENSION
     Dosage: 240 MG Q DAY
     Dates: end: 20060226
  3. CARDIZEM LA [Suspect]
     Indication: HYPERTENSION
     Dosage: DF
     Dates: end: 20060226
  4. CARDIZEM LA [Suspect]
     Indication: HYPERTENSION
     Dosage: 240 MG BID
     Dates: start: 20060329
  5. ASPIRIN [Concomitant]

REACTIONS (9)
  - BLOOD PRESSURE INCREASED [None]
  - CEREBROVASCULAR ACCIDENT [None]
  - CHEST DISCOMFORT [None]
  - ERYTHEMA [None]
  - FATIGUE [None]
  - HEADACHE [None]
  - MALAISE [None]
  - PALPITATIONS [None]
  - PHARMACEUTICAL PRODUCT COMPLAINT [None]
